FAERS Safety Report 4551624-2 (Version None)
Quarter: 2005Q1

REPORT INFORMATION
  Report Type: 
  Country: None (occurrence: None)
  Receive Date: 20050111
  Receipt Date: 20050104
  Transmission Date: 20050727
  Serious: Yes (Other)
  Sender: FDA-Public Use
  Company Number: 2004086474

PATIENT
  Sex: Female
  Weight: 58.9676 kg

DRUGS (5)
  1. LIPITOR [Suspect]
     Indication: CARDIAC OPERATION
     Dosage: 10 MG (10 MG, 1 IN 1 D), ORAL
     Route: 048
     Dates: start: 20030801, end: 20041001
  2. HYDROCHLOROTHIAZIDE [Concomitant]
  3. QUINAPRIL HYDROCHLORIDE (QUINAPRIL HYDROCHLOROIDE) [Concomitant]
  4. CALCIUM WITH VITAMIN D (CALCIUM PHOSPHATE, CALCIUM SODIUM LACTATE, ERG [Concomitant]
  5. CENTRUM PERFORMANCE (GINKGO BILOBA LEAF EXTRACT, MINERALS NOS, PANAX G [Concomitant]

REACTIONS (11)
  - ALANINE AMINOTRANSFERASE INCREASED [None]
  - ANGIOPATHY [None]
  - ASPARTATE AMINOTRANSFERASE INCREASED [None]
  - BLOOD ALKALINE PHOSPHATASE INCREASED [None]
  - BLOOD CHOLESTEROL INCREASED [None]
  - BLOOD TRIGLYCERIDES INCREASED [None]
  - HAEMORRHAGE [None]
  - LIMB INJURY [None]
  - LOW DENSITY LIPOPROTEIN INCREASED [None]
  - PAIN IN EXTREMITY [None]
  - VENOUS LAKE [None]
